FAERS Safety Report 21638520 (Version 1)
Quarter: 2022Q4

REPORT INFORMATION
  Report Type: Report from Study
  Country: US (occurrence: US)
  Receive Date: 20221124
  Receipt Date: 20221124
  Transmission Date: 20230112
  Serious: No
  Sender: FDA-Public Use
  Company Number: US-ABBVIE-4177523

PATIENT
  Age: 55 Year
  Sex: Female

DRUGS (2)
  1. RINVOQ [Suspect]
     Active Substance: UPADACITINIB
     Indication: Rheumatoid arthritis
     Route: 048
  2. Covid-19 Vaccine [Concomitant]
     Indication: COVID-19 immunisation
     Dosage: 1 IN 1 ONCE
     Route: 030

REACTIONS (2)
  - Lower limb fracture [Not Recovered/Not Resolved]
  - COVID-19 [Recovered/Resolved]

NARRATIVE: CASE EVENT DATE: 20220701
